FAERS Safety Report 25099146 (Version 1)
Quarter: 2025Q1

REPORT INFORMATION
  Report Type: Spontaneous
  Country: US (occurrence: US)
  Receive Date: 20250320
  Receipt Date: 20250320
  Transmission Date: 20250408
  Serious: Yes (Hospitalization)
  Sender: MYLAN
  Company Number: US-MYLANLABS-2025M1023605

PATIENT
  Age: 20 Year
  Sex: Female

DRUGS (6)
  1. LEVETIRACETAM [Suspect]
     Active Substance: LEVETIRACETAM
     Indication: Myoclonic dystonia
  2. GABAPENTIN [Suspect]
     Active Substance: GABAPENTIN
     Indication: Myoclonic dystonia
  3. PROPRANOLOL [Suspect]
     Active Substance: PROPRANOLOL HYDROCHLORIDE
     Indication: Myoclonic dystonia
  4. TETRABENAZINE [Suspect]
     Active Substance: TETRABENAZINE
     Indication: Myoclonic dystonia
  5. CLONAZEPAM [Suspect]
     Active Substance: CLONAZEPAM
     Indication: Myoclonic dystonia
  6. TOPIRAMATE [Suspect]
     Active Substance: TOPIRAMATE
     Indication: Myoclonic dystonia

REACTIONS (2)
  - Drug ineffective [Unknown]
  - Off label use [Unknown]
